FAERS Safety Report 14578752 (Version 1)
Quarter: 2018Q1

REPORT INFORMATION
  Report Type: Spontaneous
  Country: US (occurrence: US)
  Receive Date: 20180227
  Receipt Date: 20180227
  Transmission Date: 20180509
  Serious: No
  Sender: FDA-Public Use
  Company Number: US-TARO-2017TAR01075

PATIENT
  Age: 37 Year
  Sex: Female

DRUGS (2)
  1. MICONAZOLE NITRATE VAGINAL CREAM USP 2% 7 DAY CREAM [Suspect]
     Active Substance: MICONAZOLE NITRATE
     Indication: FUNGAL INFECTION
     Dosage: UNK, 1X/DAY AT NIGHT
     Route: 067
     Dates: start: 20171211, end: 20171212
  2. MICONAZOLE NITRATE VAGINAL CREAM USP 2% 7 DAY CREAM [Suspect]
     Active Substance: MICONAZOLE NITRATE
     Dosage: ^BIT OF CREAM,^ 1X/DAY AT NIGHT
     Route: 061
     Dates: start: 20171211, end: 20171212

REACTIONS (3)
  - Application site papules [Not Recovered/Not Resolved]
  - Dysuria [Not Recovered/Not Resolved]
  - Pain [Recovered/Resolved]

NARRATIVE: CASE EVENT DATE: 20171212
